FAERS Safety Report 14425516 (Version 1)
Quarter: 2018Q1

REPORT INFORMATION
  Report Type: Report from Study
  Country: BR (occurrence: BR)
  Receive Date: 20180123
  Receipt Date: 20180123
  Transmission Date: 20180509
  Serious: Yes (Other)
  Sender: FDA-Public Use
  Company Number: PHHY2018BR001383

PATIENT
  Sex: Female
  Weight: 52 kg

DRUGS (4)
  1. ACLASTA [Suspect]
     Active Substance: ZOLEDRONIC ACID
     Indication: FEMUR FRACTURE
  2. ACLASTA [Suspect]
     Active Substance: ZOLEDRONIC ACID
     Indication: OSTEOPOROSIS
     Dosage: 1 DF (5 MG/ 100ML), Q12MO
     Route: 042
     Dates: start: 20160823, end: 20160823
  3. PROLIA [Concomitant]
     Active Substance: DENOSUMAB
     Indication: FEMUR FRACTURE
  4. PROLIA [Concomitant]
     Active Substance: DENOSUMAB
     Indication: OSTEOPOROSIS
     Dosage: (60, EVERY 6 MONTHS)
     Route: 065

REACTIONS (6)
  - Renal impairment [Unknown]
  - Concomitant disease aggravated [Unknown]
  - Blood urea increased [Unknown]
  - Femur fracture [Unknown]
  - Myocardial infarction [Unknown]
  - Blood creatinine increased [Unknown]

NARRATIVE: CASE EVENT DATE: 2017
